FAERS Safety Report 24962818 (Version 3)
Quarter: 2025Q3

REPORT INFORMATION
  Report Type: Spontaneous
  Country: US (occurrence: US)
  Receive Date: 20250213
  Receipt Date: 20250818
  Transmission Date: 20251021
  Serious: Yes (Other)
  Sender: SANOFI AVENTIS
  Company Number: US-SA-2025SA041586

PATIENT
  Age: 75 Year
  Sex: Male
  Weight: 57.61 kg

DRUGS (2)
  1. REZUROCK [Suspect]
     Active Substance: BELUMOSUDIL
     Indication: Chronic graft versus host disease
     Dosage: 200 MG, QD
     Route: 048
     Dates: start: 20230630
  2. JAKAFI [Concomitant]
     Active Substance: RUXOLITINIB

REACTIONS (6)
  - Hip arthroplasty [Unknown]
  - Pain [Unknown]
  - Swelling [Unknown]
  - Paraesthesia [Unknown]
  - Bronchitis [Unknown]
  - Contusion [Unknown]

NARRATIVE: CASE EVENT DATE: 20250101
